FAERS Safety Report 9254243 (Version 1)
Quarter: 2013Q2

REPORT INFORMATION
  Report Type: Spontaneous
  Country: FR (occurrence: None)
  Receive Date: 20130419
  Receipt Date: 20130419
  Transmission Date: 20140414
  Serious: Yes (Hospitalization)
  Sender: FDA-Public Use
  Company Number: 1672495

PATIENT
  Age: 71 Year
  Sex: Male

DRUGS (2)
  1. PACLITAXEL [Suspect]
     Indication: NON-SMALL CELL LUNG CANCER
     Route: 042
     Dates: start: 20130301, end: 20130301
  2. (NACL FRESENIUS) [Concomitant]

REACTIONS (8)
  - Shock [None]
  - Malaise [None]
  - Loss of consciousness [None]
  - Terminal state [None]
  - Chest discomfort [None]
  - Eye movement disorder [None]
  - Hypertension [None]
  - Acute coronary syndrome [None]
